FAERS Safety Report 8603487 (Version 5)
Quarter: 2013Q2

REPORT INFORMATION
  Report Type: Report from Study
  Country: MX (occurrence: MX)
  Receive Date: 20120607
  Receipt Date: 20130502
  Transmission Date: 20140414
  Serious: Yes (Hospitalization)
  Sender: FDA-Public Use
  Company Number: MX-BRISTOL-MYERS SQUIBB COMPANY-16651002

PATIENT
  Age: 53 Year
  Sex: Male
  Weight: 56.5 kg

DRUGS (6)
  1. ERBITUX [Suspect]
     Indication: HEAD AND NECK CANCER
     Dosage: REG 1?MOST RECENT DOSE:10MAY12
     Route: 042
     Dates: start: 20120510
  2. CISPLATIN [Suspect]
     Indication: HEAD AND NECK CANCER
     Dosage: MOST RECENT DOSE:10MAY12
     Route: 042
     Dates: start: 20120510
  3. 5-FLUOROURACIL [Suspect]
     Indication: HEAD AND NECK CANCER
     Dosage: RECENT DOSE:13-MAY-12
     Route: 042
     Dates: start: 20120510
  4. TRAMADOL [Concomitant]
  5. ACETAMINOPHEN [Concomitant]
  6. SODIUM PICOSULFATE [Concomitant]

REACTIONS (1)
  - Mucosal inflammation [Recovered/Resolved]
